FAERS Safety Report 5844849-7 (Version None)
Quarter: 2008Q3

REPORT INFORMATION
  Report Type: 
  Country: None (occurrence: None)
  Receive Date: 20080812
  Receipt Date: 20080731
  Transmission Date: 20090109
  Serious: Yes (Other)
  Sender: FDA-Public Use
  Company Number: 2008AP05810

PATIENT
  Age: 41 Year
  Sex: Female

DRUGS (1)
  1. INDERAL [Suspect]
     Dosage: ORAL FORMULATION: TABLET
     Route: 048

REACTIONS (1)
  - DISSEMINATED INTRAVASCULAR COAGULATION [None]
